FAERS Safety Report 8595762 (Version 2)
Quarter: 2013Q2

REPORT INFORMATION
  Report Type: Spontaneous
  Country: US (occurrence: US)
  Receive Date: 20120605
  Receipt Date: 20130628
  Transmission Date: 20140414
  Serious: Yes (Hospitalization)
  Sender: FDA-Public Use
  Company Number: US-ASTRAZENECA-2012SE35431

PATIENT
  Sex: Female

DRUGS (1)
  1. NEXIUM [Suspect]
     Indication: GASTROOESOPHAGEAL REFLUX DISEASE
     Route: 048

REACTIONS (7)
  - Multiple fractures [Unknown]
  - Upper limb fracture [Unknown]
  - Wrist fracture [Unknown]
  - Osteoporosis [Unknown]
  - Arthritis [Unknown]
  - Glaucoma [Unknown]
  - Depression [Unknown]
